FAERS Safety Report 20689612 (Version 1)
Quarter: 2022Q2

REPORT INFORMATION
  Report Type: Spontaneous
  Country: US (occurrence: None)
  Receive Date: 20220407
  Receipt Date: 20220407
  Transmission Date: 20220721
  Serious: Yes (Hospitalization)
  Sender: FDA-Public Use
  Company Number: None

PATIENT
  Age: 53 Year
  Sex: Male
  Weight: 80.55 kg

DRUGS (1)
  1. SPIRONOLACTONE [Suspect]
     Active Substance: SPIRONOLACTONE
     Indication: Primary hyperaldosteronism
     Dosage: OTHER QUANTITY : 1 TABLET(S);?FREQUENCY : DAILY;?OTHER ROUTE : GIVEN THROUGH FEEDING TUBE;?
     Route: 050
     Dates: start: 20220330, end: 20220406

REACTIONS (20)
  - Myalgia [None]
  - Muscle spasms [None]
  - Muscle spasms [None]
  - Paraesthesia [None]
  - Heart rate abnormal [None]
  - Confusional state [None]
  - Fatigue [None]
  - Dry mouth [None]
  - Thirst [None]
  - Dizziness [None]
  - Headache [None]
  - Asthenia [None]
  - Abdominal pain upper [None]
  - Rash [None]
  - Urticaria [None]
  - Pruritus [None]
  - Dyspnoea [None]
  - Dysphagia [None]
  - Haemoptysis [None]
  - Urine output decreased [None]

NARRATIVE: CASE EVENT DATE: 20220406
